FAERS Safety Report 11661591 (Version 1)
Quarter: 2015Q4

REPORT INFORMATION
  Report Type: Spontaneous
  Country: US (occurrence: US)
  Receive Date: 20151026
  Receipt Date: 20151026
  Transmission Date: 20160304
  Serious: No
  Sender: FDA-Public Use
  Company Number: US-BAUSCH-BL-2014-010503

PATIENT
  Sex: Male

DRUGS (6)
  1. ATIVAN [Suspect]
     Active Substance: LORAZEPAM
  2. ATIVAN [Suspect]
     Active Substance: LORAZEPAM
  3. ATIVAN [Suspect]
     Active Substance: LORAZEPAM
  4. ATIVAN [Suspect]
     Active Substance: LORAZEPAM
     Indication: HYPERTENSION
  5. ATIVAN [Suspect]
     Active Substance: LORAZEPAM
  6. ATIVAN [Suspect]
     Active Substance: LORAZEPAM
     Indication: ANXIETY

REACTIONS (1)
  - Off label use [Unknown]
